FAERS Safety Report 6045859-X (Version None)
Quarter: 2009Q1

REPORT INFORMATION
  Report Type: 
  Country: None (occurrence: None)
  Receive Date: 20090121
  Receipt Date: 20090115
  Transmission Date: 20090719
  Serious: No
  Sender: FDA-Public Use
  Company Number: US-B.I. PHARMACEUTICALS,INC./RIDGEFIELD-2008-BP-16780BP

PATIENT
  Age: 57 Year
  Sex: Female
  Weight: 86 kg

DRUGS (4)
  1. MIRAPEX [Suspect]
     Indication: PARKINSON'S DISEASE
     Dosage: 20MG
     Dates: start: 20070901, end: 20080901
  2. SIMVASTATIN [Concomitant]
  3. AMANTADINE HCL [Concomitant]
     Dates: start: 20070118
  4. CLONAZEPAM [Concomitant]
     Dates: start: 20071001

REACTIONS (4)
  - CELLULITIS [None]
  - OEDEMA [None]
  - OEDEMA PERIPHERAL [None]
  - RASH [None]
